FAERS Safety Report 4375870-6 (Version None)
Quarter: 2004Q2

REPORT INFORMATION
  Report Type: 
  Country: None (occurrence: None)
  Receive Date: 20040609
  Receipt Date: 20040609
  Transmission Date: 20050107
  Serious: Yes (Life-Threatening, Hospitalization)
  Sender: FDA-Public Use
  Company Number: None

PATIENT
  Age: 53 Year
  Sex: Female
  Weight: 61.5 kg

DRUGS (12)
  1. XELODA [Suspect]
     Indication: COLORECTAL CANCER
     Dates: start: 20040604, end: 20040606
  2. OXALIPLATIN 85 MG/M2 Q2 WK [Suspect]
     Indication: COLORECTAL CANCER
     Dates: start: 20040603
  3. AVASTIN [Suspect]
     Indication: COLORECTAL CANCER
     Dates: start: 20040603
  4. CALCIUM [Concomitant]
  5. VIT B6 [Concomitant]
  6. VIT C [Concomitant]
  7. M.V.I. [Concomitant]
  8. ZOFRAN [Concomitant]
  9. DECADRON [Concomitant]
  10. COMPAZINE [Concomitant]
  11. FISH OIL [Concomitant]
  12. PREDNISONE [Concomitant]

REACTIONS (1)
  - INTESTINAL PERFORATION [None]
